FAERS Safety Report 5300309-3 (Version None)
Quarter: 2007Q2

REPORT INFORMATION
  Report Type: 
  Country: None (occurrence: None)
  Receive Date: 20070418
  Receipt Date: 20070404
  Transmission Date: 20071010
  Serious: Yes (Disabling)
  Sender: FDA-Public Use
  Company Number: PHBS2007NO06681

PATIENT

DRUGS (1)
  1. ZOMETA [Suspect]

REACTIONS (2)
  - DYSPHONIA [None]
  - PARESIS [None]
